FAERS Safety Report 6263639-7 (Version None)
Quarter: 2009Q3

REPORT INFORMATION
  Report Type: 
  Country: None (occurrence: None)
  Receive Date: 20090710
  Receipt Date: 20090616
  Transmission Date: 20100115
  Serious: No
  Sender: FDA-Public Use
  Company Number: JP-ROCHE-641145

PATIENT
  Sex: Female

DRUGS (7)
  1. TAMIFLU [Suspect]
     Indication: INFLUENZA
     Route: 048
     Dates: start: 20090611, end: 20090614
  2. POLARAMINE [Suspect]
     Indication: DRUG USE FOR UNKNOWN INDICATION
     Dosage: DOSE FORM: ORAL FORMULATION (NOS)
     Route: 048
  3. EPHEDRA [Suspect]
     Indication: DRUG USE FOR UNKNOWN INDICATION
     Dosage: DRUG: EPHEDRA TEAS, FORM: ORAL FORMULATION (NOS)
     Route: 048
  4. KLARICID [Suspect]
     Indication: DRUG USE FOR UNKNOWN INDICATION
     Route: 048
  5. ASVERIN [Suspect]
     Indication: DRUG USE FOR UNKNOWN INDICATION
     Dosage: FORM: ORAL FORMULATION (NOS), GENERIC: TIPEPIDINE HIBENZATE
     Route: 048
  6. NAPA [Suspect]
     Indication: DRUG USE FOR UNKNOWN INDICATION
     Dosage: FORM: ORAL FORMULATION (NOS)
     Route: 048
  7. KIKYO-TO [Suspect]
     Indication: DRUG USE FOR UNKNOWN INDICATION
     Dosage: FORM: ORAL FORMULATION NOS
     Route: 048

REACTIONS (1)
  - DRUG EXPOSURE VIA BREAST MILK [None]
